FAERS Safety Report 8290823-3 (Version None)
Quarter: 2012Q2

REPORT INFORMATION
  Report Type: 
  Country: None (occurrence: None)
  Receive Date: 20120417
  Receipt Date: 20110902
  Transmission Date: 20120825
  Serious: No
  Sender: FDA-Public Use
  Company Number: US-BRISTOL-MYERS SQUIBB COMPANY-16028342

PATIENT
  Age: 16 Year
  Sex: Female

DRUGS (1)
  1. DROXIA [Suspect]

REACTIONS (4)
  - WRONG DRUG ADMINISTERED [None]
  - SKIN LESION [None]
  - FATIGUE [None]
  - EPISTAXIS [None]
